FAERS Safety Report 7262380-1 (Version None)
Quarter: 2011Q1

REPORT INFORMATION
  Report Type: 
  Country: None (occurrence: None)
  Receive Date: 20110130
  Receipt Date: 20101116
  Transmission Date: 20110831
  Serious: No
  Sender: FDA-Public Use
  Company Number: US-ABBOTT-10P-163-0686030-00

PATIENT
  Sex: Female
  Weight: 119.86 kg

DRUGS (5)
  1. MULTIVITAMINS WITH IRON [Concomitant]
     Indication: PRODUCT USED FOR UNKNOWN INDICATION
  2. ZANTAC [Concomitant]
     Indication: GASTROOESOPHAGEAL REFLUX DISEASE
     Route: 048
  3. HUMIRA [Suspect]
     Indication: CROHN'S DISEASE
     Dates: start: 20100701
  4. TOPAMAX [Concomitant]
     Indication: MIGRAINE
     Route: 048
  5. LISINOPRIL [Concomitant]
     Indication: HYPERTENSION
     Route: 048

REACTIONS (13)
  - INJECTION SITE PAIN [None]
  - BURNING SENSATION [None]
  - VOMITING [None]
  - GASTROINTESTINAL PAIN [None]
  - DIARRHOEA [None]
  - PHOTOSENSITIVITY REACTION [None]
  - DYSGEUSIA [None]
  - INJECTION SITE EXTRAVASATION [None]
  - PARAESTHESIA [None]
  - BONE PAIN [None]
  - RASH [None]
  - DEVICE MALFUNCTION [None]
  - INJECTION SITE NODULE [None]
